FAERS Safety Report 6216639-7 (Version None)
Quarter: 2009Q2

REPORT INFORMATION
  Report Type: 
  Country: None (occurrence: None)
  Receive Date: 20090605
  Receipt Date: 20090529
  Transmission Date: 20091009
  Serious: Yes (Hospitalization)
  Sender: FDA-Public Use
  Company Number: US-NOVOPROD-287861

PATIENT
  Sex: Female

DRUGS (2)
  1. NOVOLOG [Suspect]
     Indication: INSULIN-REQUIRING TYPE 2 DIABETES MELLITUS
     Dosage: SLIDING SCALE PLUS 3 IU, TID
     Route: 058
     Dates: start: 20010101
  2. LANTUS [Concomitant]
     Indication: INSULIN-REQUIRING TYPE 2 DIABETES MELLITUS
     Dosage: 35 IU, QD
     Route: 058

REACTIONS (5)
  - CARDIAC DISORDER [None]
  - DEHYDRATION [None]
  - PNEUMONIA [None]
  - PRODUCT QUALITY ISSUE [None]
  - VOMITING [None]
